FAERS Safety Report 10283280 (Version 2)
Quarter: 2014Q4

REPORT INFORMATION
  Report Type: Spontaneous
  Country: JP (occurrence: JP)
  Receive Date: 20140708
  Receipt Date: 20141007
  Transmission Date: 20150528
  Serious: Yes (Hospitalization)
  Sender: FDA-Public Use
  Company Number: JP-JNJFOC-20140702475

PATIENT
  Age: 59 Year
  Sex: Female

DRUGS (9)
  1. XARELTO [Suspect]
     Active Substance: RIVAROXABAN
     Indication: ATRIAL FIBRILLATION
     Route: 048
     Dates: start: 20140519, end: 20140629
  2. BAKTAR [Concomitant]
     Active Substance: SULFAMETHOXAZOLE\TRIMETHOPRIM
     Route: 048
  3. SENNARIDE [Concomitant]
     Active Substance: SENNOSIDES A AND B
     Route: 048
  4. ASPARA (ASPARTATE POTASSIUM, MAGNESIUM ASPARTATE) [Concomitant]
     Route: 065
  5. VICCLOX [Concomitant]
     Active Substance: ACYCLOVIR SODIUM
     Route: 065
  6. DIART [Concomitant]
     Active Substance: AZOSEMIDE
     Route: 048
  7. XARELTO [Suspect]
     Active Substance: RIVAROXABAN
     Indication: CEREBROVASCULAR ACCIDENT PROPHYLAXIS
     Route: 048
     Dates: start: 20140519, end: 20140629
  8. PARIET [Concomitant]
     Active Substance: RABEPRAZOLE SODIUM
     Route: 048
  9. MAINTATE [Concomitant]
     Active Substance: BISOPROLOL FUMARATE
     Route: 048

REACTIONS (1)
  - Interstitial lung disease [Unknown]

NARRATIVE: CASE EVENT DATE: 20140626
